FAERS Safety Report 7730065-0 (Version None)
Quarter: 2011Q3

REPORT INFORMATION
  Report Type: 
  Country: None (occurrence: None)
  Receive Date: 20110906
  Receipt Date: 20110826
  Transmission Date: 20111222
  Serious: No
  Sender: FDA-Public Use
  Company Number: PHHY2011SE76945

PATIENT

DRUGS (1)
  1. TASIGNA [Suspect]

REACTIONS (1)
  - DRUG ADMINISTRATION ERROR [None]
